FAERS Safety Report 8835916 (Version 7)
Quarter: 2019Q2

REPORT INFORMATION
  Report Type: Spontaneous
  Country: US (occurrence: US)
  Receive Date: 20121011
  Receipt Date: 20190506
  Transmission Date: 20190711
  Serious: Yes (Other)
  Sender: FDA-Public Use
  Company Number: US-PFIZER INC-2012251562

PATIENT
  Age: 67 Year
  Sex: Female
  Weight: 104 kg

DRUGS (13)
  1. DIFLUNISAL. [Concomitant]
     Active Substance: DIFLUNISAL
     Indication: PAIN
  2. LYRICA [Suspect]
     Active Substance: PREGABALIN
     Dosage: UNK
  3. TYLENOL WITH CODEINE [Concomitant]
     Active Substance: ACETAMINOPHEN\CODEINE PHOSPHATE
     Indication: SPONDYLITIS
     Dosage: UNK, AS NEEDED
  4. IRON [Concomitant]
     Active Substance: IRON
     Dosage: UNK, DAILY
  5. LISINOPRIL. [Concomitant]
     Active Substance: LISINOPRIL
     Indication: BLOOD PRESSURE INCREASED
     Dosage: 10 MG, 1X/DAY
  6. LYRICA [Suspect]
     Active Substance: PREGABALIN
     Dosage: 200 MG, 2X/DAY
  7. LEVOTHYROXINE. [Concomitant]
     Active Substance: LEVOTHYROXINE
     Indication: THYROID DISORDER
     Dosage: 75 UG, 1X/DAY
  8. VITAMIN D2 [Concomitant]
     Active Substance: ERGOCALCIFEROL
     Dosage: 2000 IU, DAILY
  9. LYRICA [Suspect]
     Active Substance: PREGABALIN
     Indication: FIBROMYALGIA
     Dosage: 100 MG, 1X/DAY [ONCE A DAY]
  10. LYRICA [Suspect]
     Active Substance: PREGABALIN
     Dosage: 100 MG, 2X/DAY [ONE IN THE MORNING AND ONE IN THE EVENING]
  11. FOLIC ACID. [Concomitant]
     Active Substance: FOLIC ACID
     Dosage: 400 MG, DAILY
  12. VITAMIN C [Concomitant]
     Active Substance: ASCORBIC ACID
     Dosage: 500 MG, DAILY
  13. DIFLUNISAL. [Concomitant]
     Active Substance: DIFLUNISAL
     Indication: ARTHRITIS
     Dosage: UNK, 2X/DAY [500 MG, TABLET, HALF A TABLET IN MORNING AND AT NIGHT]

REACTIONS (14)
  - Nervousness [Unknown]
  - Drug ineffective [Unknown]
  - Stress [Unknown]
  - Dyspnoea [Unknown]
  - Limb asymmetry [Unknown]
  - Visual impairment [Unknown]
  - Weight increased [Unknown]
  - Malaise [Unknown]
  - Off label use [Recovered/Resolved]
  - Musculoskeletal discomfort [Unknown]
  - Fall [Unknown]
  - Memory impairment [Unknown]
  - Fatigue [Unknown]
  - Arthropathy [Unknown]

NARRATIVE: CASE EVENT DATE: 201302
